FAERS Safety Report 8762135 (Version 2)
Quarter: 2012Q4

REPORT INFORMATION
  Report Type: 
  Country: US (occurrence: US)
  Receive Date: 20120830
  Receipt Date: 20120912
  Transmission Date: 20130627
  Serious: Yes (Death, Hospitalization, Other)
  Sender: FDA-Public Use
  Company Number: US-ACTELION-A-NJ2012-64954

PATIENT
  Age: 53 Year
  Sex: Female

DRUGS (3)
  1. VELETRI [Suspect]
     Indication: PULMONARY ARTERIAL HYPERTENSION
     Dosage: 10.5 ng/kg, per min
     Route: 041
     Dates: start: 20110826, end: 20120826
  2. FLOLAN [Concomitant]
  3. LASIX [Concomitant]

REACTIONS (15)
  - Biliary cirrhosis primary [Fatal]
  - Hepatic encephalopathy [Fatal]
  - Ammonia increased [Fatal]
  - Mental status changes [Fatal]
  - Fluid retention [Fatal]
  - Pneumonia [Recovering/Resolving]
  - Decubitus ulcer [Unknown]
  - Infection [Unknown]
  - Polyuria [Unknown]
  - Migraine [Recovering/Resolving]
  - Abdominal discomfort [Recovering/Resolving]
  - Hypersensitivity [Recovering/Resolving]
  - Sinusitis [Recovering/Resolving]
  - Secretion discharge [Recovering/Resolving]
  - Drug dose omission [Unknown]
